FAERS Safety Report 8158960-1 (Version None)
Quarter: 2012Q1

REPORT INFORMATION
  Report Type: 
  Country: None (occurrence: None)
  Receive Date: 20120223
  Receipt Date: 20120216
  Transmission Date: 20120608
  Serious: Yes (Other)
  Sender: FDA-Public Use
  Company Number: US-SANOFI-AVENTIS-2012SA010691

PATIENT

DRUGS (2)
  1. ELOXATIN [Suspect]
     Route: 041
  2. ELOXATIN [Suspect]
     Route: 041

REACTIONS (2)
  - OXYGEN SATURATION DECREASED [None]
  - UNEVALUABLE EVENT [None]
